FAERS Safety Report 8553328-8 (Version None)
Quarter: 2012Q3

REPORT INFORMATION
  Report Type: 
  Country: None (occurrence: None)
  Receive Date: 20120731
  Receipt Date: 20120726
  Transmission Date: 20120928
  Serious: Yes (Disabling)
  Sender: FDA-Public Use
  Company Number: IL-ROCHE-1043435

PATIENT
  Age: 60 Year
  Sex: Female
  Weight: 51.5 kg

DRUGS (6)
  1. VEMURAFENIB [Suspect]
     Dosage: DOSE DCREASED
     Route: 048
     Dates: start: 20110711, end: 20120130
  2. PAMIDRONATE DISODIUM [Suspect]
     Indication: PRODUCT USED FOR UNKNOWN INDICATION
     Dosage: ROUTE, DOSE, FORM AND FREQUENCY: NOT REPORTED
     Dates: start: 20110201
  3. PREDNISONE TAB [Concomitant]
     Dates: start: 20110704
  4. VEMURAFENIB [Suspect]
     Indication: METASTATIC MALIGNANT MELANOMA
     Route: 048
     Dates: start: 20110623
  5. FEXOFENADINE HCL [Concomitant]
  6. PREDNISONE TAB [Concomitant]
     Dates: start: 20120223

REACTIONS (1)
  - GLOMERULONEPHRITIS MINIMAL LESION [None]
